FAERS Safety Report 9304050 (Version 2)
Quarter: 2013Q2

REPORT INFORMATION
  Report Type: Report from Study
  Country: US (occurrence: US)
  Receive Date: 20130522
  Receipt Date: 20130627
  Transmission Date: 20140414
  Serious: Yes (Other)
  Sender: FDA-Public Use
  Company Number: US-MYLANLABS-2013S1010853

PATIENT
  Age: 27 Year
  Sex: Female
  Weight: 51.71 kg

DRUGS (4)
  1. AMNESTEEM CAPSULES [Suspect]
     Indication: ACNE
     Route: 048
     Dates: start: 20130204, end: 201303
  2. AMNESTEEM CAPSULES [Suspect]
     Indication: ACNE
     Route: 048
     Dates: start: 201303, end: 20130515
  3. AMNESTEEM CAPSULES [Suspect]
     Indication: ACNE
     Route: 048
     Dates: start: 201304, end: 20130515
  4. TRINESSA [Concomitant]

REACTIONS (1)
  - Lower gastrointestinal haemorrhage [Not Recovered/Not Resolved]
